FAERS Safety Report 18970139 (Version 1)
Quarter: 2021Q1

REPORT INFORMATION
  Report Type: Spontaneous
  Country: NO (occurrence: NO)
  Receive Date: 20210304
  Receipt Date: 20210304
  Transmission Date: 20210420
  Serious: Yes (Other)
  Sender: FDA-Public Use
  Company Number: NVSC2021NO042740

PATIENT
  Age: 38 Year
  Sex: Male
  Weight: 87 kg

DRUGS (7)
  1. VITAMIN D [Concomitant]
     Active Substance: VITAMIN D NOS
     Indication: PRODUCT USED FOR UNKNOWN INDICATION
     Dosage: UNK
     Route: 065
  2. TRESIBA [Concomitant]
     Active Substance: INSULIN DEGLUDEC
     Indication: PRODUCT USED FOR UNKNOWN INDICATION
     Dosage: 35IE I D?GNET (INJ V?SKE 200 E/ML)
     Route: 065
     Dates: start: 202006
  3. LAMICTAL [Concomitant]
     Active Substance: LAMOTRIGINE
     Indication: DEPRESSION
     Dosage: 100MG TO GANGER I D?GNET
     Route: 065
     Dates: start: 202003
  4. RITALIN [Suspect]
     Active Substance: METHYLPHENIDATE HYDROCHLORIDE
     Indication: ATTENTION DEFICIT HYPERACTIVITY DISORDER
     Dosage: 60 MG (RITALIN KAPS MODIF FRISETTING 60 MG)
     Route: 048
     Dates: start: 202011, end: 20210126
  5. WELLBUTRIN [Concomitant]
     Active Substance: BUPROPION HYDROCHLORIDE
     Indication: DEPRESSION
     Dosage: 300MG I D?GNET (RETARD TAB MODIF FRISETTING 300 MG)
     Route: 065
     Dates: start: 202003
  6. SOMAC [Concomitant]
     Active Substance: PANTOPRAZOLE SODIUM
     Indication: DYSPEPSIA
     Dosage: 40MG I D?GNET (SOMAC ENTEROTAB 40 MG)
     Route: 065
     Dates: start: 2019
  7. NOVORAPID [Concomitant]
     Active Substance: INSULIN ASPART
     Indication: PRODUCT USED FOR UNKNOWN INDICATION
     Dosage: FLEXPEN INJ V?SKE 100 E/ML, CA 15IE TIL HVERT M?LTID.
     Route: 065

REACTIONS (4)
  - Major depression [Recovered/Resolved]
  - Apathy [Recovered/Resolved]
  - Social avoidant behaviour [Unknown]
  - Asthenia [Unknown]

NARRATIVE: CASE EVENT DATE: 202012
